FAERS Safety Report 18402238 (Version 1)
Quarter: 2020Q4

REPORT INFORMATION
  Report Type: Other
  Country: CN (occurrence: CN)
  Receive Date: 20201019
  Receipt Date: 20201019
  Transmission Date: 20210114
  Serious: Yes (Other)
  Sender: FDA-Public Use
  Company Number: CN-GE HEALTHCARE LIFE SCIENCES-2020CSU005272

PATIENT

DRUGS (9)
  1. VISIPAQUE [Suspect]
     Active Substance: IODIXANOL
     Indication: ANGIOGRAM
     Dosage: 100 ML, SINGLE
     Route: 013
     Dates: start: 20200916, end: 20200916
  2. FONDAPARINUX SODIUM. [Concomitant]
     Active Substance: FONDAPARINUX SODIUM
     Indication: ANTICOAGULANT THERAPY
     Dosage: UNK
     Dates: start: 20200731, end: 20200915
  3. GADOPENTETATE DIMEGLUMINE. [Concomitant]
     Active Substance: GADOPENTETATE DIMEGLUMINE
     Indication: COMPUTERISED TOMOGRAM
  4. IODIXANOL. [Suspect]
     Active Substance: IODIXANOL
     Indication: ANGIOGRAM
     Dosage: 50 ML, SINGLE
     Route: 013
     Dates: start: 20200916, end: 20200916
  5. OXYCODONE [Concomitant]
     Active Substance: OXYCODONE
     Indication: SYMPTOMATIC TREATMENT
     Dosage: UNK
  6. GABAPENTIN. [Concomitant]
     Active Substance: GABAPENTIN
     Indication: SYMPTOMATIC TREATMENT
  7. IODIXANOL. [Concomitant]
     Active Substance: IODIXANOL
     Indication: COMPUTERISED TOMOGRAM
  8. CARBAMAZEPINE. [Concomitant]
     Active Substance: CARBAMAZEPINE
     Indication: PAIN
     Dosage: UNK
     Dates: start: 20200820, end: 20200924
  9. VISIPAQUE [Suspect]
     Active Substance: IODIXANOL
     Indication: PRODUCT USED FOR UNKNOWN INDICATION

REACTIONS (3)
  - Rash vesicular [Not Recovered/Not Resolved]
  - Swelling [Not Recovered/Not Resolved]
  - Pain [Not Recovered/Not Resolved]

NARRATIVE: CASE EVENT DATE: 20200917
